FAERS Safety Report 24686613 (Version 1)
Quarter: 2024Q4

REPORT INFORMATION
  Report Type: Spontaneous
  Country: BR (occurrence: BR)
  Receive Date: 20241202
  Receipt Date: 20241202
  Transmission Date: 20250115
  Serious: Yes (Other)
  Sender: PFIZER
  Company Number: BR-TAKEDA-2024TUS118323

PATIENT
  Age: 64 Year
  Sex: Female

DRUGS (9)
  1. PANTOPRAZOLE [Suspect]
     Active Substance: PANTOPRAZOLE
     Dosage: UNK
  2. DEXILANT [Suspect]
     Active Substance: DEXLANSOPRAZOLE
     Indication: Chronic gastritis
     Dosage: 30 MILLIGRAM
     Route: 048
  3. DEXILANT [Suspect]
     Active Substance: DEXLANSOPRAZOLE
     Indication: Gastrooesophageal reflux disease
     Dosage: 60 MILLIGRAM (SLOW RELEASE)
     Route: 048
  4. ESPINHEIRA SANTA [Concomitant]
     Dosage: 380 MILLIGRAM, QD
  5. LINAGLIPTIN [Concomitant]
     Active Substance: LINAGLIPTIN
     Dosage: 5 MILLIGRAM
  6. CREATINE [Concomitant]
     Active Substance: CREATINE
     Dosage: 3 MILLIGRAM, QD
  7. CHOLECALCIFEROL [Concomitant]
     Active Substance: CHOLECALCIFEROL
     Dosage: UNK UNK, 1/WEEK
  8. PREGABALIN [Concomitant]
     Active Substance: PREGABALIN
     Dosage: 50 MILLIGRAM
  9. BROMAZEPAM\SULPIRIDE [Concomitant]
     Active Substance: BROMAZEPAM\SULPIRIDE
     Dosage: UNK

REACTIONS (25)
  - Diverticulitis [Unknown]
  - Cachexia [Unknown]
  - Uveitis [Unknown]
  - Tuberculosis of eye [Unknown]
  - Gastrointestinal disorder [Unknown]
  - Pain [Unknown]
  - Diabetes mellitus [Unknown]
  - Burning sensation [Unknown]
  - Polyp [Unknown]
  - Spinal disorder [Unknown]
  - Osteoarthritis [Unknown]
  - Glycated albumin increased [Unknown]
  - Hypophagia [Unknown]
  - Lactose intolerance [Unknown]
  - Rheumatic disorder [Unknown]
  - Malaise [Unknown]
  - Dysphagia [Unknown]
  - Gastritis [Unknown]
  - Gastrooesophageal reflux disease [Unknown]
  - Weight increased [Unknown]
  - Arthritis [Unknown]
  - Anxiety [Unknown]
  - Somnolence [Unknown]
  - Depression [Unknown]
  - Diarrhoea [Unknown]
